FAERS Safety Report 20511071 (Version 1)
Quarter: 2022Q1

REPORT INFORMATION
  Report Type: Spontaneous
  Country: CA (occurrence: CF)
  Receive Date: 20220224
  Receipt Date: 20220224
  Transmission Date: 20220424
  Serious: Yes (Life-Threatening, Hospitalization)
  Sender: FDA-Public Use
  Company Number: None

PATIENT
  Age: 18 Year
  Sex: Male
  Weight: 73 kg

DRUGS (70)
  1. ETOPOSIDE [Suspect]
     Active Substance: ETOPOSIDE
     Indication: Lymphoma
     Route: 042
  2. DOXORUBICIN HYDROCHLORIDE [Suspect]
     Active Substance: DOXORUBICIN HYDROCHLORIDE
     Indication: Lymphoma
     Route: 042
  3. FLUDARABINE [Suspect]
     Active Substance: FLUDARABINE PHOSPHATE
     Indication: Bone marrow conditioning regimen
     Route: 042
  4. CYCLOPHOSPHAMIDE [Suspect]
     Active Substance: CYCLOPHOSPHAMIDE
     Indication: Bone marrow conditioning regimen
     Route: 042
  5. CYTARABINE [Suspect]
     Active Substance: CYTARABINE
     Indication: Lymphoma
     Dosage: 1 EVERY 12 HOURS
     Route: 042
  6. IFOSFAMIDE [Suspect]
     Active Substance: IFOSFAMIDE
     Indication: Lymphoma
     Route: 042
  7. VINCRISTINE SULFATE [Suspect]
     Active Substance: VINCRISTINE SULFATE
     Indication: Lymphoma
     Route: 042
  8. ACETAMINOPHEN [Concomitant]
     Active Substance: ACETAMINOPHEN
  9. ALLOPURINOL [Concomitant]
     Active Substance: ALLOPURINOL
  10. ALTEPLASE [Concomitant]
     Active Substance: ALTEPLASE
     Dosage: LIQUID INTRAVENOUS
  11. AMITRIPTYLINE [Concomitant]
     Active Substance: AMITRIPTYLINE
  12. AMLODIPINE [Concomitant]
     Active Substance: AMLODIPINE BESYLATE
  13. AMOXICILLIN [Concomitant]
     Active Substance: AMOXICILLIN
  14. AMPHOTERICIN B [Concomitant]
     Active Substance: AMPHOTERICIN B
  15. BUPIVACAINE [Concomitant]
     Active Substance: BUPIVACAINE
     Dosage: SOLUTION BLOCK/INFILTRATION
  16. CAFFEINE [Concomitant]
     Active Substance: CAFFEINE
  17. CALCIUM [Concomitant]
     Active Substance: CALCIUM
  18. CASPOFUNGIN [Concomitant]
     Active Substance: CASPOFUNGIN
  19. CEFAZOLIN [Concomitant]
     Active Substance: CEFAZOLIN
  20. CEFTRIAXONE [Concomitant]
     Active Substance: CEFTRIAXONE
     Dosage: POWDER FOR SOLUTION INTRAMUSCULAR
  21. CETIRIZINE [Concomitant]
     Active Substance: CETIRIZINE HYDROCHLORIDE
  22. CHOLECALCIFEROL [Concomitant]
     Active Substance: CHOLECALCIFEROL
  23. CIPROFLOXACIN [Concomitant]
     Active Substance: CIPROFLOXACIN
  24. CLONIDINE [Concomitant]
     Active Substance: CLONIDINE
  25. DIAZEPAM [Concomitant]
     Active Substance: DIAZEPAM
  26. DIMENHYDRINATE [Concomitant]
     Active Substance: DIMENHYDRINATE
     Dosage: LIQUID INTRAVENOUS
  27. DIPHENHYDRAMINE [Concomitant]
     Active Substance: DIPHENHYDRAMINE
  28. DOCUSATE SODIUM [Concomitant]
     Active Substance: DOCUSATE SODIUM
  29. ESOMEPRAZOLE [Concomitant]
     Active Substance: ESOMEPRAZOLE
  30. FENTANYL [Concomitant]
     Active Substance: FENTANYL
  31. GRANULOCYTE COLONY STIMULATING FACT [Concomitant]
  32. FOSCARNET SODIUM [Concomitant]
     Active Substance: FOSCARNET SODIUM
     Route: 042
  33. FUROSEMIDE [Concomitant]
     Active Substance: FUROSEMIDE
  34. GANCICLOVIR [Concomitant]
     Active Substance: GANCICLOVIR
  35. HYDROCORTISONE [Concomitant]
     Active Substance: HYDROCORTISONE
     Dosage: POWDER FOR SOLUTION INTRAMUSCULAR
  36. HYDROMORPHONE [Concomitant]
     Active Substance: HYDROMORPHONE
  37. INSULIN NOS [Concomitant]
     Active Substance: INSULIN NOS
  38. RUXOLITINIB [Concomitant]
     Active Substance: RUXOLITINIB
  39. LANSOPRAZOLE [Concomitant]
     Active Substance: LANSOPRAZOLE
  40. LORAZEPAM [Concomitant]
     Active Substance: LORAZEPAM
  41. MAGNESIUM [Concomitant]
     Active Substance: MAGNESIUM
  42. MELATONIN [Concomitant]
     Active Substance: MELATONIN
  43. MEROPENEM [Concomitant]
     Active Substance: MEROPENEM
  44. MESNA [Concomitant]
     Active Substance: MESNA
  45. METHADONE [Concomitant]
     Active Substance: METHADONE HYDROCHLORIDE
  46. METHOTREXATE [Concomitant]
     Active Substance: METHOTREXATE
  47. METHYLPREDNISOLONE [Concomitant]
     Active Substance: METHYLPREDNISOLONE
  48. METOCLOPRAMIDE [Concomitant]
     Active Substance: METOCLOPRAMIDE
  49. MYCAMINE [Concomitant]
     Active Substance: MICAFUNGIN SODIUM
  50. NICOTINE [Concomitant]
     Active Substance: NICOTINE
  51. ONDANSETRON [Concomitant]
     Active Substance: ONDANSETRON
  52. PANTOPRAZOLE [Concomitant]
     Active Substance: PANTOPRAZOLE
  53. PIMOZIDE [Concomitant]
     Active Substance: PIMOZIDE
  54. PIPERACILLIN AND TAZOBACTAM [Concomitant]
     Active Substance: PIPERACILLIN SODIUM\TAZOBACTAM SODIUM
  55. POLYETHYLENE GLYCOL [Concomitant]
     Active Substance: POLYETHYLENE GLYCOL
  56. POTASSIUM [Concomitant]
     Active Substance: POTASSIUM
     Dosage: SOLUTION INTRAVENOUS
  57. PREDNISONE [Concomitant]
     Active Substance: PREDNISONE
  58. LAPINE T-LYMPHOCYTE IMMUNE GLOBULIN [Concomitant]
     Active Substance: LAPINE T-LYMPHOCYTE IMMUNE GLOBULIN
  59. RANITIDINE [Concomitant]
     Active Substance: RANITIDINE
  60. RISPERIDONE [Concomitant]
     Active Substance: RISPERIDONE
  61. SODIUM [Concomitant]
     Active Substance: SODIUM
  62. SODIUM PHOSPHATE [Concomitant]
     Active Substance: SODIUM PHOSPHATE
  63. TACROLIMUS [Concomitant]
     Active Substance: TACROLIMUS
  64. TRANEXAMIC ACID [Concomitant]
     Active Substance: TRANEXAMIC ACID
  65. SULFAMETHOXAZOLE\TRIMETHOPRIM [Concomitant]
     Active Substance: SULFAMETHOXAZOLE\TRIMETHOPRIM
  66. URSODIOL [Concomitant]
     Active Substance: URSODIOL
  67. VALACYCLOVIR HYDROCHLORIDE [Concomitant]
     Active Substance: VALACYCLOVIR HYDROCHLORIDE
  68. VALGANCICLOVIR [Concomitant]
     Active Substance: VALGANCICLOVIR
  69. VANCOMYCIN [Concomitant]
     Active Substance: VANCOMYCIN
  70. VENLAFAXINE HYDROCHLORIDE [Concomitant]
     Active Substance: VENLAFAXINE HYDROCHLORIDE

REACTIONS (2)
  - Aplastic anaemia [Unknown]
  - Mucosal inflammation [Unknown]
